FAERS Safety Report 9615484 (Version 3)
Quarter: 2013Q4

REPORT INFORMATION
  Report Type: Report from Study
  Country: US (occurrence: US)
  Receive Date: 20131011
  Receipt Date: 20131205
  Transmission Date: 20140711
  Serious: No
  Sender: FDA-Public Use
  Company Number: US-JNJFOC-20131003324

PATIENT
  Sex: Female
  Weight: 86.18 kg

DRUGS (18)
  1. REMICADE [Suspect]
     Indication: COLITIS ULCERATIVE
     Dosage: 3-4 VIALS OF 100 MG
     Route: 042
     Dates: start: 20130611
  2. REMICADE [Suspect]
     Indication: CROHN^S DISEASE
     Dosage: 3-4 VIALS OF 100 MG
     Route: 042
     Dates: start: 20130611
  3. REMICADE [Suspect]
     Indication: RHEUMATOID ARTHRITIS
     Dosage: 3-4 VIALS OF 100 MG
     Route: 042
     Dates: start: 20130611
  4. LEFLUNOMIDE [Interacting]
     Indication: RHEUMATOID ARTHRITIS
     Route: 048
     Dates: start: 2012
  5. TRICOR [Interacting]
     Indication: BLOOD CHOLESTEROL
     Route: 048
  6. TRAMADOL [Interacting]
     Indication: PRODUCT USED FOR UNKNOWN INDICATION
     Route: 065
  7. METOPROLOL [Interacting]
     Indication: HYPERTENSION
     Route: 048
  8. TRIAMTERENE + HYDROCHLOROTHIAZIDE [Interacting]
     Indication: PRODUCT USED FOR UNKNOWN INDICATION
     Route: 065
  9. FLUOXETINE [Interacting]
     Indication: DEPRESSION
     Route: 048
  10. PANTOPRAZOLE SODIUM [Interacting]
     Indication: HYPERCHLORHYDRIA
     Route: 048
  11. SINGULAIR [Interacting]
     Indication: OBSTRUCTIVE AIRWAYS DISORDER
     Route: 048
  12. LEVOTHYROXINE [Interacting]
     Indication: THYROID DISORDER
     Route: 048
  13. FLUTICASONE [Interacting]
     Indication: OBSTRUCTIVE AIRWAYS DISORDER
     Dosage: TWO SPRAYS IN EACH NOSTRIL ONCE DAILY.
     Route: 045
  14. VITAMIN D [Concomitant]
     Indication: VITAMIN D DECREASED
     Dosage: 5000 UNITS
     Route: 048
  15. VITAMIN B12 [Concomitant]
     Indication: PRODUCT USED FOR UNKNOWN INDICATION
     Route: 048
  16. CALCIUM [Concomitant]
     Route: 048
  17. MULTI VIT [Concomitant]
     Route: 065
  18. VITAMIN D3 [Concomitant]
     Route: 065

REACTIONS (12)
  - Plantar fasciitis [Recovering/Resolving]
  - Drug interaction [Unknown]
  - Cough [Not Recovered/Not Resolved]
  - Hair growth abnormal [Not Recovered/Not Resolved]
  - Rash macular [Recovering/Resolving]
  - Urticaria [Not Recovered/Not Resolved]
  - Recurring skin boils [Unknown]
  - Pruritus [Not Recovered/Not Resolved]
  - Exfoliative rash [Not Recovered/Not Resolved]
  - Skin exfoliation [Recovering/Resolving]
  - Skin discolouration [Not Recovered/Not Resolved]
  - Skin disorder [Recovering/Resolving]
